FAERS Safety Report 5118231-4 (Version None)
Quarter: 2006Q4

REPORT INFORMATION
  Report Type: 
  Country: None (occurrence: None)
  Receive Date: 20061002
  Receipt Date: 20060615
  Transmission Date: 20070319
  Serious: No
  Sender: FDA-Public Use
  Company Number: US-BRISTOL-MYERS SQUIBB COMPANY-13414057

PATIENT
  Age: 65 Year
  Sex: Male
  Weight: 81 kg

DRUGS (7)
  1. ORENCIA [Suspect]
     Indication: RHEUMATOID ARTHRITIS
     Route: 042
     Dates: start: 20060531
  2. NEXIUM [Concomitant]
  3. KLONOPIN [Concomitant]
     Dosage: DOSE AT HS
  4. PERCOCET [Concomitant]
     Dosage: EVERY 6 HOURS AS NECESSARY
  5. PROVIGIL [Concomitant]
  6. ZANTAC [Concomitant]
     Dosage: TAKEN FOR 5 DAYS WHILE RECEIVING ORENCIA
  7. ALLEGRA [Concomitant]
     Dosage: TAKEN FOR 5 DAYS WHILE RECEIVING ORENCIA

REACTIONS (2)
  - MUSCULOSKELETAL PAIN [None]
  - PAIN IN EXTREMITY [None]
